FAERS Safety Report 16539604 (Version 1)
Quarter: 2019Q3

REPORT INFORMATION
  Report Type: Spontaneous
  Country: PL (occurrence: PL)
  Receive Date: 20190708
  Receipt Date: 20190708
  Transmission Date: 20191004
  Serious: Yes (Hospitalization)
  Sender: FDA-Public Use
  Company Number: PL-TEVA-2019-PL-1074458

PATIENT
  Sex: Female

DRUGS (3)
  1. TRAMAL [Concomitant]
     Active Substance: TRAMADOL
     Route: 065
  2. OLFEN (DICLOFENAC SODIUM) [Suspect]
     Active Substance: DICLOFENAC SODIUM
     Route: 065
  3. NEUROVIT [Concomitant]
     Route: 065

REACTIONS (1)
  - Tachycardia [Unknown]
